FAERS Safety Report 5785967-1 (Version None)
Quarter: 2008Q2

REPORT INFORMATION
  Report Type: 
  Country: None (occurrence: None)
  Receive Date: 20080624
  Receipt Date: 20080610
  Transmission Date: 20081010
  Serious: Yes (Other)
  Sender: FDA-Public Use
  Company Number: PHHY2008BR10590

PATIENT
  Sex: Female
  Weight: 50 kg

DRUGS (3)
  1. VOLTAREN [Suspect]
     Indication: PAIN
     Dosage: UNK
     Route: 048
     Dates: start: 19930101
  2. MIACALCIN [Concomitant]
  3. RESIDRONOTOO ACTONOSE [Concomitant]

REACTIONS (15)
  - ABDOMINAL PAIN UPPER [None]
  - BLADDER DISORDER [None]
  - DIARRHOEA [None]
  - DUODENAL ULCER [None]
  - DYSURIA [None]
  - FATIGUE [None]
  - GASTRIC LAVAGE [None]
  - GASTRIC ULCER [None]
  - HAEMORRHAGE [None]
  - OSTEOPETROSIS [None]
  - PERFORATED ULCER [None]
  - PYREXIA [None]
  - STOMACH DISCOMFORT [None]
  - SURGERY [None]
  - VOMITING [None]
